FAERS Safety Report 7793185-0 (Version None)
Quarter: 2011Q4

REPORT INFORMATION
  Report Type: 
  Country: None (occurrence: None)
  Receive Date: 20111003
  Receipt Date: 20110921
  Transmission Date: 20120403
  Serious: Yes (Hospitalization)
  Sender: FDA-Public Use
  Company Number: JP-SANOFI-AVENTIS-2011SA062557

PATIENT
  Age: 79 Year
  Sex: Female
  Weight: 50.9 kg

DRUGS (19)
  1. AMLODIPINE [Concomitant]
     Route: 048
  2. SIGMART [Concomitant]
     Route: 048
     Dates: start: 20100902, end: 20110309
  3. AMINOLEBAN EN [Concomitant]
     Route: 048
     Dates: start: 20110224
  4. ALLOID [Concomitant]
     Indication: PROPHYLAXIS
     Route: 048
     Dates: start: 20110330
  5. AMINOLEBAN [Concomitant]
     Dates: start: 20110210, end: 20110225
  6. OMEPRAZOLE [Concomitant]
     Indication: PROPHYLAXIS
     Route: 048
     Dates: end: 20110309
  7. ISOSORBIDE DINITRATE [Concomitant]
     Dosage: FORM:TAPE
     Route: 062
     Dates: start: 20100818, end: 20100907
  8. RABEPRAZOLE SODIUM [Concomitant]
     Indication: PROPHYLAXIS
     Route: 048
     Dates: start: 20110406
  9. HEPARIN [Concomitant]
     Dosage: DOSE:2000 UNIT(S)
     Route: 042
     Dates: start: 20100903, end: 20100903
  10. HEPARIN [Concomitant]
     Dosage: DOSE:10000 UNIT(S)
     Route: 042
     Dates: start: 20100907, end: 20100907
  11. PRAVASTATIN SODIUM [Concomitant]
     Route: 048
     Dates: end: 20100902
  12. ITAVASTATIN [Concomitant]
     Route: 048
     Dates: start: 20100903
  13. MONILAC [Concomitant]
     Route: 048
     Dates: start: 20110211
  14. CLOPIDOGREL BISULFATE [Suspect]
     Dosage: LOADING TREATMENT: THE 1ST DAY-2ND MONTH
     Route: 065
  15. CLOPIDOGREL BISULFATE [Suspect]
     Dosage: MAINTAINANCE TREATMENT: THE 1ST DAY-2ND MONTH TREATMENT
     Route: 065
     Dates: start: 20100818
  16. SELBEX [Concomitant]
     Indication: PROPHYLAXIS
     Route: 048
     Dates: start: 20110119, end: 20110330
  17. ENALAPRIL MALEATE [Concomitant]
     Route: 048
     Dates: start: 20100908
  18. CLOPIDOGREL BISULFATE [Suspect]
     Dosage: MAINTAINANCE TREATMENT: THE 3RD MONTH-1 YEAR TREATMENT
     Route: 065
     Dates: end: 20110209
  19. ASPIRIN [Concomitant]
     Route: 048
     Dates: start: 20100818

REACTIONS (6)
  - ASPARTATE AMINOTRANSFERASE INCREASED [None]
  - HEPATIC ENCEPHALOPATHY [None]
  - ALANINE AMINOTRANSFERASE INCREASED [None]
  - GAMMA-GLUTAMYLTRANSFERASE INCREASED [None]
  - BLOOD ALKALINE PHOSPHATASE INCREASED [None]
  - HEPATIC ENZYME INCREASED [None]
